FAERS Safety Report 15225646 (Version 4)
Quarter: 2020Q4

REPORT INFORMATION
  Report Type: Other
  Country: US (occurrence: US)
  Receive Date: 20180801
  Receipt Date: 20201201
  Transmission Date: 20210113
  Serious: Yes (Hospitalization)
  Sender: FDA-Public Use
  Company Number: US-ROCHE-2161632

PATIENT
  Age: 40 Year
  Sex: Female

DRUGS (14)
  1. OCREVUS [Suspect]
     Active Substance: OCRELIZUMAB
     Dosage: SECOND DOSE
     Route: 042
     Dates: start: 20180723
  2. PYRIDIUM [Concomitant]
     Active Substance: PHENAZOPYRIDINE
  3. SYMMETREL [Concomitant]
     Active Substance: AMANTADINE HYDROCHLORIDE
     Dosage: TAKE 1 CAPSULE BY MOUTH TWICE DAILY
     Route: 048
  4. VITAMIN D [ERGOCALCIFEROL] [Concomitant]
     Active Substance: ERGOCALCIFEROL
     Route: 048
  5. ARMODAFINIL. [Concomitant]
     Active Substance: ARMODAFINIL
     Dosage: TAKE 150 MG BY MOUTH DAILY
     Route: 048
  6. ZOLOFT [Concomitant]
     Active Substance: SERTRALINE HYDROCHLORIDE
  7. DIMETHYL FUMARATE [Concomitant]
     Active Substance: DIMETHYL FUMARATE
     Route: 048
  8. AMPYRA [Concomitant]
     Active Substance: DALFAMPRIDINE
     Dosage: TAKE 1 TAB BY MOUTH 2 TIMES DAILY
  9. OXYBUTYNIN. [Concomitant]
     Active Substance: OXYBUTYNIN CHLORIDE
  10. ELAVIL [AMITRIPTYLINE] [Concomitant]
     Indication: DEPRESSION
     Dosage: 2 HS
  11. ELAVIL [AMITRIPTYLINE] [Concomitant]
     Indication: NEURALGIA
  12. OCREVUS [Suspect]
     Active Substance: OCRELIZUMAB
     Indication: RELAPSING MULTIPLE SCLEROSIS
     Route: 042
     Dates: start: 20180103
  13. MOTRIN [Concomitant]
     Active Substance: IBUPROFEN
     Indication: PAIN
     Dosage: TAKE 1 TABLET BY MOUTH EVERY 12 HOURS AS NEEDED.
     Route: 048
  14. LOSARTAN. [Concomitant]
     Active Substance: LOSARTAN

REACTIONS (5)
  - Ear infection [Unknown]
  - Facial paralysis [Recovered/Resolved]
  - Herpes zoster [Recovered/Resolved]
  - Facial paresis [Unknown]
  - Stress [Not Recovered/Not Resolved]

NARRATIVE: CASE EVENT DATE: 20180708
